FAERS Safety Report 16723466 (Version 1)
Quarter: 2019Q3

REPORT INFORMATION
  Report Type: Spontaneous
  Country: GB (occurrence: GB)
  Receive Date: 20190821
  Receipt Date: 20190821
  Transmission Date: 20191005
  Serious: Yes (Other)
  Sender: FDA-Public Use
  Company Number: GB-SA-2019SA221880

PATIENT
  Age: 49 Year
  Sex: Female
  Weight: 55 kg

DRUGS (7)
  1. HYLO-FORTE [Concomitant]
     Active Substance: HYALURONATE SODIUM
     Dosage: USE AS DIRECTED
     Route: 065
     Dates: start: 20190718, end: 20190723
  2. EVOREL [Concomitant]
     Dosage: 2 DF, QW APPLY
     Route: 065
     Dates: start: 20190718
  3. SALBUTAMOL [Concomitant]
     Active Substance: ALBUTEROL
     Dosage: 2 DF, PRN
     Route: 055
     Dates: start: 20180626
  4. OPTILAST [Concomitant]
     Dosage: 2 GTT DROPS, QD 1/12 MILLILITRE
     Route: 065
     Dates: start: 20190719
  5. DYMISTA [Concomitant]
     Active Substance: AZELASTINE HYDROCHLORIDE\FLUTICASONE PROPIONATE
     Dosage: 2 DF, QD PUFF
     Route: 065
     Dates: start: 20190719
  6. FEXOFENADINE HYDROCHLORIDE. [Suspect]
     Active Substance: FEXOFENADINE HYDROCHLORIDE
     Dosage: 180 MG, QD
     Route: 065
     Dates: start: 20190719
  7. QVAR [Concomitant]
     Active Substance: BECLOMETHASONE DIPROPIONATE
     Dosage: 4 DF, QD
     Route: 055
     Dates: start: 20180420

REACTIONS (2)
  - Palpitations [Unknown]
  - Asthma [Recovered/Resolved]
